FAERS Safety Report 9859206 (Version 2)
Quarter: 2014Q1

REPORT INFORMATION
  Report Type: Spontaneous
  Country: US (occurrence: US)
  Receive Date: 20140131
  Receipt Date: 20140131
  Transmission Date: 20141002
  Serious: Yes (Hospitalization)
  Sender: FDA-Public Use
  Company Number: US-BRISTOL-MYERS SQUIBB COMPANY-20136263

PATIENT
  Age: 65 Year
  Sex: Male
  Weight: 129.7 kg

DRUGS (14)
  1. GLUCOPHAGE TABS 500 MG [Suspect]
     Dosage: INCREASED TO 500 MG TWICE DAILY.
  2. LISINOPRIL [Suspect]
     Indication: HYPERTENSION
     Dosage: TABS
  3. LANTUS [Suspect]
     Dosage: 1DF:100 UNIT/ML PEN 21 UNIT QHS
  4. ATORVASTATIN [Suspect]
     Indication: HYPERLIPIDAEMIA
  5. TRICOR [Suspect]
     Indication: HYPERLIPIDAEMIA
  6. CENTRUM SILVER [Concomitant]
     Dosage: TABS
  7. PANTOPRAZOLE SODIUM [Concomitant]
  8. CARVEDILOL [Concomitant]
     Dosage: TABS
  9. CLONIDINE HCL [Concomitant]
     Dosage: 1DF:01.MG 2 TABS
  10. ASPIRIN [Concomitant]
     Dosage: 1DF:81 MG TABS
  11. AMLODIPINE BESYLATE [Concomitant]
     Dosage: TABS
  12. HYDROCHLOROTHIAZIDE [Concomitant]
     Dosage: TABS
  13. TYLENOL ARTHRITIS [Concomitant]
     Indication: PAIN
     Dosage: EXTENDED RELEASED TABS
  14. MYCOPHENOLATE MOFETIL [Concomitant]

REACTIONS (1)
  - Pancreatitis [Unknown]
